FAERS Safety Report 6424799-8 (Version None)
Quarter: 2009Q4

REPORT INFORMATION
  Report Type: 
  Country: None (occurrence: None)
  Receive Date: 20091029
  Receipt Date: 20090811
  Transmission Date: 20100525
  Serious: Yes (Other)
  Sender: FDA-Public Use
  Company Number: 2009RR-26204

PATIENT
  Age: 84 Year
  Sex: Female

DRUGS (1)
  1. OFLOXACIN [Suspect]
     Dosage: 400 MG, BID

REACTIONS (1)
  - CONVULSION [None]
